FAERS Safety Report 4664053-8 (Version None)
Quarter: 2005Q2

REPORT INFORMATION
  Report Type: 
  Country: None (occurrence: None)
  Receive Date: 20050516
  Receipt Date: 20050509
  Transmission Date: 20051028
  Serious: Yes (Hospitalization)
  Sender: FDA-Public Use
  Company Number: OMPQ-PR-0505S-0709

PATIENT
  Age: 33 Year
  Sex: Male
  Weight: 134.7183 kg

DRUGS (4)
  1. OMNIPAQUE 140 [Suspect]
     Dosage: 120 ML, SINGLE DOSE, EXTRAVASATION
     Dates: start: 20050509, end: 20050509
  2. PREDNISONE [Concomitant]
  3. POTASSIUM CHLORIDE [Concomitant]
  4. COUMADIN [Concomitant]

REACTIONS (4)
  - INJECTION SITE OEDEMA [None]
  - INJECTION SITE VESICLES [None]
  - INJECTION SITE WARMTH [None]
  - SKIN TIGHTNESS [None]
